FAERS Safety Report 11036620 (Version 2)
Quarter: 2015Q2

REPORT INFORMATION
  Report Type: Report from Study
  Country: US (occurrence: US)
  Receive Date: 20150416
  Receipt Date: 20150427
  Transmission Date: 20150821
  Serious: Yes (Death, Life-Threatening, Hospitalization, Disabling, Other)
  Sender: FDA-Public Use
  Company Number: US-ALEXION-A201501244

PATIENT

DRUGS (1)
  1. SOLIRIS [Suspect]
     Active Substance: ECULIZUMAB
     Indication: PRODUCT USED FOR UNKNOWN INDICATION
     Dosage: UNK
     Route: 042

REACTIONS (14)
  - Acute lymphocytic leukaemia recurrent [Fatal]
  - Embolic stroke [Not Recovered/Not Resolved]
  - Nausea [Unknown]
  - Cardio-respiratory arrest [Unknown]
  - Asthenia [Unknown]
  - Abasia [Unknown]
  - Depressed level of consciousness [Unknown]
  - Hypotension [Unknown]
  - Staphylococcal sepsis [Fatal]
  - Malaise [Not Recovered/Not Resolved]
  - Confusional state [Unknown]
  - Vomiting [Unknown]
  - Diarrhoea [Unknown]
  - Neck pain [Unknown]

NARRATIVE: CASE EVENT DATE: 20150406
